FAERS Safety Report 7043571-1 (Version None)
Quarter: 2010Q4

REPORT INFORMATION
  Report Type: 
  Country: None (occurrence: None)
  Receive Date: 20101013
  Receipt Date: 20101007
  Transmission Date: 20110411
  Serious: Yes (Other)
  Sender: FDA-Public Use
  Company Number: A0883080A

PATIENT
  Age: 47 Year
  Sex: Male

DRUGS (1)
  1. PROMACTA [Suspect]
     Indication: HEPATITIS C
     Dosage: 75MG PER DAY
     Dates: start: 20100514, end: 20100515

REACTIONS (3)
  - HEPATIC FAILURE [None]
  - HYPERBILIRUBINAEMIA [None]
  - PORTAL VEIN THROMBOSIS [None]
